FAERS Safety Report 6167361-7 (Version None)
Quarter: 2009Q2

REPORT INFORMATION
  Report Type: 
  Country: None (occurrence: None)
  Receive Date: 20090424
  Receipt Date: 20090420
  Transmission Date: 20091009
  Serious: Yes (Other)
  Sender: FDA-Public Use
  Company Number: US-ALLERGAN-0903619US

PATIENT
  Sex: Female
  Weight: 72.562 kg

DRUGS (9)
  1. LATISSE [Suspect]
     Indication: HYPOTRICHOSIS
     Dosage: 1 GTT, QD
     Route: 061
     Dates: start: 20090310, end: 20090312
  2. LATISSE [Suspect]
  3. LEXAPRO [Concomitant]
  4. LIPITOR [Concomitant]
  5. FLONASE [Concomitant]
  6. PROTONIX [Concomitant]
  7. ASMANEX TWISTHALER [Concomitant]
  8. ASTALIN [Concomitant]
  9. ZYRTEC [Concomitant]

REACTIONS (1)
  - VITREOUS DETACHMENT [None]
